FAERS Safety Report 8920822 (Version 1)
Quarter: 2012Q4

REPORT INFORMATION
  Report Type: 
  Country: US (occurrence: US)
  Receive Date: 20121121
  Receipt Date: 20121121
  Transmission Date: 20130627
  Serious: Yes (Death)
  Sender: FDA-Public Use
  Company Number: US-WATSON-2012-19611

PATIENT
  Age: 64 Year
  Sex: Male

DRUGS (3)
  1. OMEPRAZOLE (WATSON LABORATORIES) [Suspect]
     Indication: GASTROOESOPHAGEAL REFLUX DISEASE
     Dosage: UNK UNK, unknown
  2. CEFTAZIDIME [Suspect]
     Indication: BACTERIAL SEPSIS
     Dosage: unk
  3. DOXYCYCLINE (WATSON LABORATORIES) [Suspect]
     Indication: BACTERIAL SEPSIS
     Dosage: UNK UNK, unknown
     Route: 065

REACTIONS (2)
  - Bacterial sepsis [Fatal]
  - Drug ineffective [Fatal]
